FAERS Safety Report 8184968-6 (Version None)
Quarter: 2012Q1

REPORT INFORMATION
  Report Type: 
  Country: None (occurrence: None)
  Receive Date: 20120305
  Receipt Date: 20120302
  Transmission Date: 20120608
  Serious: Yes (Other)
  Sender: FDA-Public Use
  Company Number: GB-GLAXOSMITHKLINE-B0785195A

PATIENT
  Age: 68 Year
  Sex: Male
  Weight: 63.5 kg

DRUGS (2)
  1. RANITIDINE [Concomitant]
     Indication: GASTROOESOPHAGEAL REFLUX DISEASE
     Dosage: 300MG PER DAY
     Route: 048
     Dates: start: 20110718, end: 20111110
  2. ROPINIROLE [Suspect]
     Indication: RESTLESS LEGS SYNDROME
     Route: 048
     Dates: end: 20120110

REACTIONS (3)
  - FATIGUE [None]
  - FEELING ABNORMAL [None]
  - PRESYNCOPE [None]
